FAERS Safety Report 7265776-7 (Version None)
Quarter: 2011Q1

REPORT INFORMATION
  Report Type: 
  Country: None (occurrence: None)
  Receive Date: 20110131
  Receipt Date: 20110121
  Transmission Date: 20110831
  Serious: Yes (Other)
  Sender: FDA-Public Use
  Company Number: US-ASTRAZENECA-2011SE03631

PATIENT
  Age: 17225 Day
  Sex: Female
  Weight: 60.3 kg

DRUGS (5)
  1. KLONOPIN [Concomitant]
     Route: 048
  2. MOTRIN [Concomitant]
     Route: 048
  3. BENTYL [Concomitant]
     Indication: ABDOMINAL DISCOMFORT
     Route: 048
  4. SEROQUEL XR [Suspect]
     Indication: BIPOLAR I DISORDER
     Route: 048
     Dates: start: 20090101
  5. PHENERGAN HCL [Concomitant]
     Indication: ABDOMINAL DISCOMFORT
     Route: 048

REACTIONS (7)
  - FALL [None]
  - MEMORY IMPAIRMENT [None]
  - GASTRITIS [None]
  - WEIGHT INCREASED [None]
  - HEPATIC VEIN THROMBOSIS [None]
  - RIB FRACTURE [None]
  - NASOPHARYNGITIS [None]
